FAERS Safety Report 20939593 (Version 4)
Quarter: 2022Q3

REPORT INFORMATION
  Report Type: Spontaneous
  Country: DE (occurrence: DE)
  Receive Date: 20220609
  Receipt Date: 20220726
  Transmission Date: 20221027
  Serious: Yes (Other)
  Sender: FDA-Public Use
  Company Number: DE-VERTEX PHARMACEUTICALS-2022-008651

PATIENT
  Sex: Male

DRUGS (13)
  1. ELEXACAFTOR\IVACAFTOR\TEZACAFTOR [Suspect]
     Active Substance: ELEXACAFTOR\IVACAFTOR\TEZACAFTOR
     Indication: Cystic fibrosis
     Dosage: 2 TABS (75 MG IVA/50 MG TEZA/100 MG ELEXA) IN MORNING
     Route: 048
     Dates: start: 20210621
  2. KALYDECO [Suspect]
     Active Substance: IVACAFTOR
     Indication: Cystic fibrosis
     Dosage: 1 TAB IN PM
     Route: 048
     Dates: start: 20210621
  3. ALBUTEROL [Concomitant]
     Active Substance: ALBUTEROL
  4. FLUTICASONE [Concomitant]
     Active Substance: FLUTICASONE
  5. SALMETEROL [Concomitant]
     Active Substance: SALMETEROL
  6. MUCOCLEAR [Concomitant]
  7. PULMOZYME [Concomitant]
     Active Substance: DORNASE ALFA
     Dosage: UNK, QD
  8. PANCRELIPASE [Concomitant]
     Active Substance: PANCRELIPASE
     Dosage: 25000 WITH MEALS
  9. PANCRELIPASE [Concomitant]
     Active Substance: PANCRELIPASE
     Dosage: WITH MEALS
  10. ACETAMINOPHEN [Concomitant]
     Active Substance: ACETAMINOPHEN
     Dosage: 500 MG, IF REQUIRED
  11. METAMIZOLE [Concomitant]
     Active Substance: METAMIZOLE
     Dosage: UNK, PRN
  12. FLUTICASONE PROPIONATE\SALMETEROL XINAFOATE [Concomitant]
     Active Substance: FLUTICASONE PROPIONATE\SALMETEROL XINAFOATE
     Dosage: 25/125 MICROGRAM
  13. PANTOZOL [Concomitant]
     Active Substance: PANTOPRAZOLE SODIUM
     Dosage: 40 MG, QD

REACTIONS (5)
  - Tumour perforation [Unknown]
  - Ileus [Unknown]
  - Intestinal adenocarcinoma [Unknown]
  - Peritonitis [Unknown]
  - Blood creatine phosphokinase decreased [Not Recovered/Not Resolved]

NARRATIVE: CASE EVENT DATE: 20220217
